FAERS Safety Report 6945172-X (Version None)
Quarter: 2010Q3

REPORT INFORMATION
  Report Type: 
  Country: None (occurrence: None)
  Receive Date: 20100827
  Receipt Date: 20100507
  Transmission Date: 20110219
  Serious: No
  Sender: FDA-Public Use
  Company Number: US-KINGPHARMUSA00001-K201000569

PATIENT
  Sex: Female
  Weight: 95.238 kg

DRUGS (4)
  1. FLECTOR [Suspect]
     Indication: ARTHRALGIA
     Dosage: 1 PATCH TO EACH KNEE, UNK
     Route: 061
     Dates: start: 20100101, end: 20100501
  2. OXYBUTYNIN [Suspect]
     Indication: MICTURITION URGENCY
     Dosage: UNK
  3. LISINOPRIL [Concomitant]
     Indication: HYPERTENSION
     Dosage: 5 MG, BID
     Route: 048
  4. METOPROLOL [Concomitant]
     Indication: HYPERTENSION
     Dosage: 25 MG, QD
     Route: 048

REACTIONS (6)
  - ABDOMINAL DISCOMFORT [None]
  - ARTHRALGIA [None]
  - JOINT SWELLING [None]
  - NAUSEA [None]
  - OEDEMA PERIPHERAL [None]
  - SKIN DISCOLOURATION [None]
